FAERS Safety Report 4585950-8 (Version None)
Quarter: 2005Q1

REPORT INFORMATION
  Report Type: 
  Country: None (occurrence: None)
  Receive Date: 20050214
  Receipt Date: 20050118
  Transmission Date: 20050727
  Serious: Yes (Hospitalization)
  Sender: FDA-Public Use
  Company Number: F01200500107

PATIENT
  Age: 48 Year
  Sex: Female

DRUGS (6)
  1. OXALIPLATIN - SOLUTION - 138 MG [Suspect]
     Indication: COLORECTAL CANCER METASTATIC
     Dosage: 138 MG Q2W INTRAVENOUS NOS
     Route: 042
     Dates: start: 20041201, end: 20041201
  2. FLUOROURACIL - SOLUTION - 2916 MG [Suspect]
     Dosage: 2916 MG IN 48 HOURS, WEEKLY INTRAVENOUS NOS
     Route: 042
     Dates: start: 20041201, end: 20041201
  3. ESCITALOPRAM OXALATE [Concomitant]
  4. FERRO-GRADUMENT (FERROUS SULFATE) [Concomitant]
  5. LORAZEPAM [Concomitant]
  6. OMEPRAZOLE [Concomitant]

REACTIONS (12)
  - ATROPHY [None]
  - BLOOD BICARBONATE DECREASED [None]
  - DRUG TOXICITY [None]
  - EMPHYSEMA [None]
  - HAEMOGLOBIN DECREASED [None]
  - INTERSTITIAL LUNG DISEASE [None]
  - METASTASES TO LUNG [None]
  - NEUTROPHIL COUNT INCREASED [None]
  - PNEUMOCONIOSIS [None]
  - PULMONARY FIBROSIS [None]
  - PULMONARY TOXICITY [None]
  - TRACHEAL DISORDER [None]
